FAERS Safety Report 23033757 (Version 3)
Quarter: 2023Q4

REPORT INFORMATION
  Report Type: Report from Study
  Country: CA (occurrence: CA)
  Receive Date: 20231005
  Receipt Date: 20231030
  Transmission Date: 20240110
  Serious: Yes (Other)
  Sender: FDA-Public Use
  Company Number: CA-AstraZeneca-2023A222972

PATIENT
  Sex: Female

DRUGS (1)
  1. ENHERTU [Suspect]
     Active Substance: FAM-TRASTUZUMAB DERUXTECAN-NXKI
     Indication: Breast cancer metastatic
     Dosage: 273 MG, ONCE EVERY 3 WK
     Route: 042
     Dates: start: 20230616

REACTIONS (8)
  - Head and neck cancer [Unknown]
  - Metastases to central nervous system [Unknown]
  - Malignant neoplasm progression [Unknown]
  - Abdominal distension [Unknown]
  - Chromaturia [Unknown]
  - Dyspnoea [Unknown]
  - Asthenia [Unknown]
  - Ascites [Unknown]
